FAERS Safety Report 17174814 (Version 1)
Quarter: 2019Q4

REPORT INFORMATION
  Report Type: Spontaneous
  Country: US (occurrence: US)
  Receive Date: 20191219
  Receipt Date: 20191219
  Transmission Date: 20200122
  Serious: No
  Sender: FDA-Public Use
  Company Number: US-UCBSA-122767

PATIENT
  Age: 42 Year
  Sex: Female

DRUGS (1)
  1. CIMZIA [Suspect]
     Active Substance: CERTOLIZUMAB PEGOL
     Indication: CROHN^S DISEASE
     Dosage: LOADING DOSE 400 MG AT WEEK 0, 2, 4; MAINTENANCE DOSE OF 400 MG EVERY 4 WEEKS
     Route: 058
     Dates: start: 20140517

REACTIONS (1)
  - Injection site discolouration [Recovered/Resolved]

NARRATIVE: CASE EVENT DATE: 20140517
